FAERS Safety Report 6243073-6 (Version None)
Quarter: 2009Q2

REPORT INFORMATION
  Report Type: 
  Country: None (occurrence: None)
  Receive Date: 20090624
  Receipt Date: 20090619
  Transmission Date: 20091009
  Serious: Yes (Other)
  Sender: FDA-Public Use
  Company Number: US-BAYER-200911878BCC

PATIENT
  Age: 61 Year
  Sex: Male
  Weight: 118 kg

DRUGS (1)
  1. ALEVE (CAPLET) [Suspect]
     Indication: SPONDYLITIS
     Dosage: TOTAL DAILY DOSE: 440 MG  UNIT DOSE: 220 MG
     Route: 048
     Dates: start: 20090618

REACTIONS (1)
  - BLOOD URINE PRESENT [None]
